FAERS Safety Report 10182888 (Version 1)
Quarter: 2014Q2

REPORT INFORMATION
  Report Type: Spontaneous
  Country: US (occurrence: US)
  Receive Date: 20140520
  Receipt Date: 20140520
  Transmission Date: 20141212
  Serious: Yes (Other)
  Sender: FDA-Public Use
  Company Number: US-ALEXION PHARMACEUTICALS INC.-A201401807

PATIENT
  Sex: 0

DRUGS (2)
  1. SOLIRIS 300MG [Suspect]
     Indication: COLD TYPE HAEMOLYTIC ANAEMIA
     Dosage: 1200 MG, EVERY 16 DAYS
     Route: 042
     Dates: start: 20090608, end: 20140408
  2. SOLIRIS 300MG [Suspect]
     Indication: OFF LABEL USE

REACTIONS (2)
  - Herpes zoster [Unknown]
  - Off label use [Unknown]
